FAERS Safety Report 18716755 (Version 4)
Quarter: 2021Q1

REPORT INFORMATION
  Report Type: Spontaneous
  Country: US (occurrence: US)
  Receive Date: 20210108
  Receipt Date: 20210217
  Transmission Date: 20210419
  Serious: No
  Sender: FDA-Public Use
  Company Number: US-SUNOVION-2020SUN003873

PATIENT
  Age: 67 Year
  Sex: Male

DRUGS (6)
  1. KYNMOBI [Suspect]
     Active Substance: APOMORPHINE HYDROCHLORIDE
     Indication: PARKINSON^S DISEASE
     Dosage: 20 MG
     Route: 060
     Dates: start: 20210112
  2. KYNMOBI [Suspect]
     Active Substance: APOMORPHINE HYDROCHLORIDE
     Dosage: UNK
     Route: 060
  3. CARBIDOPA. [Concomitant]
     Active Substance: CARBIDOPA
     Dosage: UNK
     Dates: end: 20210109
  4. LEVODOPA [Concomitant]
     Active Substance: LEVODOPA
     Dosage: UNK
     Dates: end: 20210109
  5. KYNMOBI [Suspect]
     Active Substance: APOMORPHINE HYDROCHLORIDE
     Dosage: 25 MG
     Route: 060
     Dates: start: 20210110, end: 20210110
  6. KYNMOBI [Suspect]
     Active Substance: APOMORPHINE HYDROCHLORIDE
     Dosage: 25 MG
     Route: 060
     Dates: start: 20201218

REACTIONS (13)
  - Fatigue [Recovering/Resolving]
  - Feeling abnormal [Unknown]
  - Dysstasia [Recovering/Resolving]
  - Dysarthria [Recovering/Resolving]
  - Motion sickness [Recovering/Resolving]
  - Musculoskeletal stiffness [Recovering/Resolving]
  - Blood pressure decreased [Unknown]
  - Vomiting [Unknown]
  - Nausea [Unknown]
  - Product administration error [Unknown]
  - Therapeutic product effect incomplete [Unknown]
  - Blood pressure increased [Unknown]
  - Headache [Recovering/Resolving]

NARRATIVE: CASE EVENT DATE: 20210110
